FAERS Safety Report 8191789-7 (Version None)
Quarter: 2012Q1

REPORT INFORMATION
  Report Type: 
  Country: None (occurrence: None)
  Receive Date: 20120307
  Receipt Date: 20120214
  Transmission Date: 20120608
  Serious: Yes (Other)
  Sender: FDA-Public Use
  Company Number: CHPA2012US003180

PATIENT
  Age: 33 Year
  Sex: Female

DRUGS (1)
  1. TRANSDERM SCOP [Suspect]
     Indication: MOTION SICKNESS
     Dosage: 1 DF, ONCE/SINGLE
     Route: 062
     Dates: start: 20120207, end: 20120208

REACTIONS (5)
  - VISION BLURRED [None]
  - DYSPHAGIA [None]
  - PHARYNGEAL OEDEMA [None]
  - DYSPNOEA [None]
  - THROAT IRRITATION [None]
